FAERS Safety Report 4379088-2 (Version None)
Quarter: 2004Q2

REPORT INFORMATION
  Report Type: 
  Country: None (occurrence: None)
  Receive Date: 20040610
  Receipt Date: 20040528
  Transmission Date: 20050107
  Serious: Yes (Other)
  Sender: FDA-Public Use
  Company Number: 2004036509

PATIENT
  Age: 53 Year
  Sex: Female

DRUGS (2)
  1. NEURONTIN [Suspect]
     Indication: ILL-DEFINED DISORDER
     Dosage: 1800 MG (600 MG, 3 IN 1 D)
     Dates: start: 20040401
  2. VICODIN (HYDROCHLORIDE BITARTRATE, PARACETAMOL) [Concomitant]

REACTIONS (1)
  - GASTRIC BYPASS [None]
